FAERS Safety Report 10163219 (Version 2)
Quarter: 2014Q2

REPORT INFORMATION
  Report Type: Spontaneous
  Country: JP (occurrence: JP)
  Receive Date: 20140509
  Receipt Date: 20140612
  Transmission Date: 20141212
  Serious: Yes (Hospitalization)
  Sender: FDA-Public Use
  Company Number: JP-BAYER-2014-069192

PATIENT
  Age: 89 Year
  Sex: Female
  Weight: 38.1 kg

DRUGS (12)
  1. ETIZOLAM [Suspect]
     Indication: INSOMNIA
     Dosage: 0.5 MG, QD
     Route: 048
     Dates: end: 201403
  2. TALION [Suspect]
     Indication: RHINITIS
     Dosage: 10 MG, BID
     Route: 048
     Dates: start: 20140225, end: 20140304
  3. BRUFEN [Suspect]
     Indication: PYREXIA
     Dosage: 200 MG, QD
     Route: 048
     Dates: start: 20140225, end: 20140304
  4. CRAVIT [Suspect]
     Indication: PYREXIA
     Dosage: 500 MG, QD
     Route: 048
     Dates: start: 20140228, end: 20140304
  5. PROTECADIN [Suspect]
     Indication: GASTRITIS
     Dosage: 10 MG, QD
     Route: 048
     Dates: start: 20140228, end: 20140304
  6. BLOPRESS [Suspect]
     Indication: HYPERTENSION
     Dosage: 8 MG, QD
     Route: 048
     Dates: end: 201403
  7. LANIRAPID [Suspect]
     Indication: CARDIAC FAILURE
     Dosage: 0.1 MG, QD
     Route: 048
     Dates: end: 201403
  8. NORVASC [Suspect]
     Indication: HYPERTENSION
     Dosage: 5 MG, QD
     Route: 048
     Dates: end: 201403
  9. BAYASPIRIN [Suspect]
     Indication: CARDIAC FAILURE
     Dosage: 100 MG, QD
     Route: 048
     Dates: end: 201403
  10. PERSANTIN [Suspect]
     Indication: CARDIAC FAILURE
     Dosage: 25 MG, TID
     Route: 048
     Dates: end: 201403
  11. MENESIT [Suspect]
     Dosage: 100 MG, UNK
     Route: 048
     Dates: end: 201403
  12. CLARITH [Concomitant]
     Indication: PYREXIA
     Route: 048

REACTIONS (1)
  - Pneumonia [Recovered/Resolved]
